FAERS Safety Report 22609705 (Version 1)
Quarter: 2023Q2

REPORT INFORMATION
  Report Type: Spontaneous
  Country: NO (occurrence: NO)
  Receive Date: 20230616
  Receipt Date: 20230616
  Transmission Date: 20230722
  Serious: Yes (Life-Threatening, Hospitalization)
  Sender: FDA-Public Use
  Company Number: None

PATIENT
  Age: 36 Year
  Sex: Male

DRUGS (1)
  1. CIPROFLOXACIN [Suspect]
     Active Substance: CIPROFLOXACIN
     Indication: Product used for unknown indication
     Route: 065
     Dates: start: 20230412, end: 20230412

REACTIONS (5)
  - Swelling face [Recovered/Resolved]
  - Upper respiratory tract congestion [Recovered/Resolved]
  - Hypersensitivity [Unknown]
  - Lacrimation increased [Unknown]
  - Sneezing [Unknown]

NARRATIVE: CASE EVENT DATE: 20230412
